FAERS Safety Report 8288020-0 (Version None)
Quarter: 2012Q2

REPORT INFORMATION
  Report Type: 
  Country: None (occurrence: None)
  Receive Date: 20120416
  Receipt Date: 20111227
  Transmission Date: 20120825
  Serious: Yes (Hospitalization, Other)
  Sender: FDA-Public Use
  Company Number: FR-GLAXOSMITHKLINE-B0771670A

PATIENT
  Age: 72 Year
  Sex: Female
  Weight: 57 kg

DRUGS (4)
  1. LAPATINIB [Suspect]
     Indication: BREAST CANCER METASTATIC
     Route: 048
     Dates: start: 20111207, end: 20120329
  2. ARANESP [Concomitant]
  3. PACLITAXEL [Suspect]
     Indication: BREAST CANCER METASTATIC
     Route: 042
     Dates: start: 20111207, end: 20120221
  4. ZOMETA [Concomitant]

REACTIONS (4)
  - NEUROPATHY PERIPHERAL [None]
  - DRUG ADMINISTRATION ERROR [None]
  - DIARRHOEA [None]
  - DISEASE PROGRESSION [None]
